FAERS Safety Report 20315960 (Version 1)
Quarter: 2022Q1

REPORT INFORMATION
  Report Type: Spontaneous
  Country: US (occurrence: None)
  Receive Date: 20220110
  Receipt Date: 20220110
  Transmission Date: 20220423
  Serious: No
  Sender: FDA-Public Use
  Company Number: US-ROCHE-2824741

PATIENT
  Sex: Male

DRUGS (1)
  1. RITUXAN [Suspect]
     Active Substance: RITUXIMAB
     Indication: Product used for unknown indication
     Dosage: STRENGTH: 100MG/10ML
     Route: 065
     Dates: start: 202007

REACTIONS (6)
  - Rheumatoid lung [Unknown]
  - Rheumatoid factor increased [Unknown]
  - Red blood cell sedimentation rate increased [Unknown]
  - Diarrhoea [Unknown]
  - Feeling abnormal [Unknown]
  - Arthralgia [Unknown]
